FAERS Safety Report 9295282 (Version 2)
Quarter: 2013Q2

REPORT INFORMATION
  Report Type: Spontaneous
  Country: GB (occurrence: GB)
  Receive Date: 20130517
  Receipt Date: 20130617
  Transmission Date: 20140414
  Serious: Yes (Other)
  Sender: FDA-Public Use
  Company Number: GB-ACCORD-017463

PATIENT
  Sex: Male

DRUGS (1)
  1. MYCOPHENOLATE MOFETIL [Suspect]
     Indication: TRANSPLANT
     Dosage: HAVING TAKEN 15 X 250 MG
     Dates: start: 20130325

REACTIONS (4)
  - Genital pain [Unknown]
  - Urine analysis abnormal [Unknown]
  - Erectile dysfunction [Unknown]
  - Inflammation [Recovered/Resolved]
